FAERS Safety Report 10036467 (Version 1)
Quarter: 2014Q1

REPORT INFORMATION
  Report Type: Spontaneous
  Country: US (occurrence: US)
  Receive Date: 20140326
  Receipt Date: 20140326
  Transmission Date: 20141002
  Serious: Yes (Other)
  Sender: FDA-Public Use
  Company Number: US-MERCK-1403USA010786

PATIENT
  Age: 68 Year
  Sex: Male

DRUGS (2)
  1. ZOCOR [Suspect]
     Dosage: 80 MG DAILY
     Route: 048
  2. DAPTOMYCIN [Suspect]
     Indication: GRAFT INFECTION
     Dosage: 4 MG/KG, EVERY 48 HOUR

REACTIONS (1)
  - Rhabdomyolysis [Unknown]
